FAERS Safety Report 5220066-9 (Version None)
Quarter: 2007Q1

REPORT INFORMATION
  Report Type: 
  Country: None (occurrence: None)
  Receive Date: 20070124
  Receipt Date: 20070124
  Transmission Date: 20070707
  Serious: Yes (Other)
  Sender: FDA-Public Use
  Company Number: None

PATIENT
  Age: 53 Year
  Sex: Male
  Weight: 95.709 kg

DRUGS (1)
  1. CIPROFLOXACIN HCL [Suspect]
     Dosage: RPGN
     Dates: start: 20060928, end: 20061011

REACTIONS (1)
  - RASH [None]
